FAERS Safety Report 13754123 (Version 1)
Quarter: 2017Q3

REPORT INFORMATION
  Report Type: Report from Study
  Country: US (occurrence: US)
  Receive Date: 20170714
  Receipt Date: 20170714
  Transmission Date: 20171127
  Serious: Yes (Hospitalization, Other)
  Sender: FDA-Public Use
  Company Number: US-TEVA-766148USA

PATIENT
  Age: 63 Year
  Sex: Female

DRUGS (12)
  1. DIVALPROEX [Concomitant]
     Active Substance: DIVALPROEX SODIUM
     Dosage: 500 MILLIGRAM DAILY; 1 TABLET ORAL DAILY AT BEDTIME
     Route: 048
  2. ASPIRIN. [Concomitant]
     Active Substance: ASPIRIN
     Dosage: 325 MILLIGRAM DAILY; 1 TABLET ORAL DAILY
     Route: 048
  3. LIPITOR [Concomitant]
     Active Substance: ATORVASTATIN CALCIUM
     Dosage: 10 MILLIGRAM DAILY; 1 TABLET ORAL DAILY AT BEDTIME
     Route: 048
  4. FOLIC ACID. [Concomitant]
     Active Substance: FOLIC ACID
     Dosage: 1 MILLIGRAM DAILY; 1 TABLET ORAL DAILY
     Route: 048
  5. TOLTERODINE [Concomitant]
     Active Substance: TOLTERODINE
     Dosage: 4 MILLIGRAM DAILY; 1 CAPSULE ORAL DAILY
     Route: 048
  6. TRAZODONE [Concomitant]
     Active Substance: TRAZODONE HYDROCHLORIDE
     Indication: INSOMNIA
     Dosage: 50 MILLIGRAM DAILY; 1 TABLET ORAL DAILY AT BEDTIME AS NEEDED FOR INSOMNIA
     Route: 048
  7. PREDNISONE. [Concomitant]
     Active Substance: PREDNISONE
     Route: 048
  8. GUAIFENESIN. [Concomitant]
     Active Substance: GUAIFENESIN
     Indication: COUGH
     Dosage: 20 MILLIGRAM/MILLILITERS DAILY; 5 ML ORAL EVERY SIX HOURS AS NEEDED FOR COUGH
     Route: 048
  9. FLUTICASONE. [Concomitant]
     Active Substance: FLUTICASONE
     Dosage: 50 MICROGRAM DAILY; 1 PUFF BY INHALATION TWICE A DAY WITH RESPIRATORY TREATMENTS
     Route: 048
  10. IPRATROPIUM [Concomitant]
     Active Substance: IPRATROPIUM
     Indication: DYSPNOEA
  11. CLOZAPINE. [Suspect]
     Active Substance: CLOZAPINE
     Dosage: 400 MILLIGRAM DAILY; 2 TABLETS ORAL EVERY TWELVE HOURS
     Route: 048
  12. MELATONIN [Concomitant]
     Active Substance: MELATONIN
     Dosage: 5 MILLIGRAM DAILY; 1 TABLET ORAL DAILY BEFORE SLEEING
     Route: 048

REACTIONS (6)
  - Oxygen saturation decreased [Unknown]
  - Respiratory disorder [Unknown]
  - Hypoxia [Recovered/Resolved]
  - Chronic obstructive pulmonary disease [Recovered/Resolved]
  - Bronchospasm [Recovered/Resolved]
  - Heart rate decreased [Unknown]

NARRATIVE: CASE EVENT DATE: 20170501
